FAERS Safety Report 18526750 (Version 1)
Quarter: 2020Q4

REPORT INFORMATION
  Report Type: Report from Study
  Country: DE (occurrence: DE)
  Receive Date: 20201120
  Receipt Date: 20201120
  Transmission Date: 20210114
  Serious: Yes (Hospitalization)
  Sender: FDA-Public Use
  Company Number: DE-EMD SERONO-9198347

PATIENT
  Age: 35 Year
  Sex: Female

DRUGS (1)
  1. MAVENCLAD [Suspect]
     Active Substance: CLADRIBINE
     Indication: MULTIPLE SCLEROSIS
     Dosage: YEAR ONE MONTH ONE THERAPY. TWO DOSAGE FORMS ON DAY 1 AND ONE DOSAGE FORMS ON DAYS 2 TO 5.
     Route: 048
     Dates: start: 20200831, end: 20200904

REACTIONS (1)
  - Abscess [Unknown]
